FAERS Safety Report 23038790 (Version 1)
Quarter: 2023Q4

REPORT INFORMATION
  Report Type: Report from Study
  Country: US (occurrence: US)
  Receive Date: 20231006
  Receipt Date: 20231006
  Transmission Date: 20240110
  Serious: Yes (Hospitalization)
  Sender: FDA-Public Use
  Company Number: US-RECORDATI RARE DISEASE INC.-2023007017

PATIENT

DRUGS (1)
  1. CARBAGLU [Suspect]
     Active Substance: CARGLUMIC ACID
     Indication: Product use in unapproved indication
     Dosage: DISSOLVED ONE 200 MG TABLET IN 2.5 ML OF WATER

REACTIONS (1)
  - Hospitalisation [Not Recovered/Not Resolved]
